FAERS Safety Report 18352930 (Version 1)
Quarter: 2020Q4

REPORT INFORMATION
  Report Type: Spontaneous
  Country: US (occurrence: US)
  Receive Date: 20201006
  Receipt Date: 20201006
  Transmission Date: 20210114
  Serious: No
  Sender: FDA-Public Use
  Company Number: US-ALLERGAN-1941037US

PATIENT
  Age: 65 Year
  Sex: Female

DRUGS (7)
  1. LINZESS [Suspect]
     Active Substance: LINACLOTIDE
     Indication: DIVERTICULITIS
  2. LINZESS [Suspect]
     Active Substance: LINACLOTIDE
     Indication: IRRITABLE BOWEL SYNDROME
     Dosage: 290 ?G AS NEEDED
     Route: 048
  3. BENTYL [Concomitant]
     Active Substance: DICYCLOMINE HYDROCHLORIDE
     Indication: MUSCLE SPASMS
  4. TYLENOL [Concomitant]
     Active Substance: ACETAMINOPHEN
     Indication: ABDOMINAL PAIN
  5. MIRALAX [Concomitant]
     Active Substance: POLYETHYLENE GLYCOL 3350
     Indication: IRRITABLE BOWEL SYNDROME
  6. LINZESS [Suspect]
     Active Substance: LINACLOTIDE
     Indication: CONSTIPATION
  7. MIRALAX [Concomitant]
     Active Substance: POLYETHYLENE GLYCOL 3350
     Indication: CONSTIPATION

REACTIONS (7)
  - Off label use [Unknown]
  - Gastrointestinal pain [Not Recovered/Not Resolved]
  - Abdominal pain [Not Recovered/Not Resolved]
  - Obstruction [Not Recovered/Not Resolved]
  - Tooth abscess [Recovered/Resolved]
  - Product use issue [Unknown]
  - Therapeutic product effect increased [Unknown]

NARRATIVE: CASE EVENT DATE: 2017
